FAERS Safety Report 24064086 (Version 1)
Quarter: 2024Q3

REPORT INFORMATION
  Report Type: Spontaneous
  Country: US (occurrence: US)
  Receive Date: 20240709
  Receipt Date: 20240709
  Transmission Date: 20241017
  Serious: Yes (Hospitalization, Other)
  Sender: TRIS PHARM
  Company Number: US-TRIS PHARMA, INC.-24US011561

PATIENT

DRUGS (2)
  1. DYANAVEL XR [Suspect]
     Active Substance: AMPHETAMINE
     Indication: Product used for unknown indication
     Dosage: UNK
  2. COCAINE [Suspect]
     Active Substance: COCAINE
     Indication: Product used for unknown indication
     Dosage: UNK

REACTIONS (7)
  - Acute kidney injury [Not Recovered/Not Resolved]
  - Acute respiratory failure [Not Recovered/Not Resolved]
  - Hypoxic-ischaemic encephalopathy [Not Recovered/Not Resolved]
  - Toxicity to various agents [Unknown]
  - Dilated cardiomyopathy [Not Recovered/Not Resolved]
  - Drug abuse [Unknown]
  - Overdose [Unknown]

NARRATIVE: CASE EVENT DATE: 20190101
